FAERS Safety Report 9744447 (Version 1)
Quarter: 2013Q4

REPORT INFORMATION
  Report Type: Spontaneous
  Country: DK (occurrence: CH)
  Receive Date: 20131210
  Receipt Date: 20131210
  Transmission Date: 20140711
  Serious: Yes (Hospitalization)
  Sender: FDA-Public Use
  Company Number: CH-FRI-1000052133

PATIENT
  Sex: Female
  Weight: 90 kg

DRUGS (4)
  1. CITALOPRAM [Suspect]
     Route: 048
     Dates: end: 20130930
  2. MINIRIN [Suspect]
     Route: 048
     Dates: end: 20130930
  3. XANAX [Suspect]
     Route: 048
     Dates: end: 20130930
  4. DORMICUM [Suspect]
     Route: 048
     Dates: end: 20130930

REACTIONS (3)
  - Hyponatraemia [Recovered/Resolved]
  - Altered state of consciousness [Recovered/Resolved]
  - Drug abuse [Recovered/Resolved]
